FAERS Safety Report 24961441 (Version 1)
Quarter: 2025Q1

REPORT INFORMATION
  Report Type: Spontaneous
  Country: US (occurrence: None)
  Receive Date: 20250212
  Receipt Date: 20250212
  Transmission Date: 20250409
  Serious: No
  Sender: FDA-CTU
  Company Number: None

PATIENT
  Age: 43 Year
  Sex: Female
  Weight: 66.15 kg

DRUGS (9)
  1. OSELTAMIVIR PHOSPHATE [Suspect]
     Active Substance: OSELTAMIVIR PHOSPHATE
     Indication: Influenza
     Dosage: OTHER QUANTITY : 1 CAPSULE(S);?FREQUENCY : EVERY 12 HOURS;?
     Route: 048
     Dates: start: 20250209, end: 20250211
  2. LOSARTAN [Concomitant]
     Active Substance: LOSARTAN
  3. AJOVY [Concomitant]
     Active Substance: FREMANEZUMAB-VFRM
  4. MAGNESIUM [Concomitant]
     Active Substance: MAGNESIUM
  5. Ribflavin [Concomitant]
  6. ZYRTEC [Concomitant]
     Active Substance: CETIRIZINE HYDROCHLORIDE
  7. IBUPROFEN [Concomitant]
     Active Substance: IBUPROFEN
  8. Coricidin [Concomitant]
  9. ROBITUSSIN DM [Concomitant]
     Active Substance: DEXTROMETHORPHAN HYDROBROMIDE\GUAIFENESIN

REACTIONS (4)
  - Swollen tongue [None]
  - Lymphadenopathy [None]
  - Dysphagia [None]
  - Odynophagia [None]

NARRATIVE: CASE EVENT DATE: 20250211
